FAERS Safety Report 9934264 (Version 1)
Quarter: 2014Q1

REPORT INFORMATION
  Report Type: Spontaneous
  Country: US (occurrence: US)
  Receive Date: 20140228
  Receipt Date: 20140228
  Transmission Date: 20141002
  Serious: Yes (Hospitalization, Other)
  Sender: FDA-Public Use
  Company Number: US-JNJFOC-20140217117

PATIENT
  Age: 64 Year
  Sex: Female

DRUGS (8)
  1. XARELTO [Suspect]
     Indication: CEREBROVASCULAR ACCIDENT PROPHYLAXIS
     Route: 048
     Dates: start: 201401, end: 20140211
  2. XARELTO [Suspect]
     Indication: ATRIAL FIBRILLATION
     Route: 048
     Dates: start: 201401, end: 20140211
  3. ASPIRIN [Suspect]
     Indication: PRODUCT USED FOR UNKNOWN INDICATION
     Route: 048
  4. DIOVAN [Concomitant]
     Route: 048
  5. SYMBICORT [Concomitant]
     Route: 065
  6. DILTIAZEM [Concomitant]
     Route: 048
  7. HCTZ [Concomitant]
     Route: 048
  8. KLOR CON [Concomitant]
     Route: 065

REACTIONS (5)
  - Contusion [Unknown]
  - Haematoma [Unknown]
  - Haemorrhage [Unknown]
  - International normalised ratio increased [Unknown]
  - Activated partial thromboplastin time prolonged [Unknown]
